FAERS Safety Report 13776383 (Version 1)
Quarter: 2017Q3

REPORT INFORMATION
  Report Type: Spontaneous
  Country: US (occurrence: US)
  Receive Date: 20170721
  Receipt Date: 20170721
  Transmission Date: 20171127
  Serious: No
  Sender: FDA-Public Use
  Company Number: US-ASTRAZENECA-2017SE72213

PATIENT
  Age: 987 Month
  Sex: Female

DRUGS (5)
  1. MOVANTIK [Suspect]
     Active Substance: NALOXEGOL OXALATE
     Indication: CONSTIPATION
     Route: 048
     Dates: start: 201706
  2. OXYCODONE [Concomitant]
     Active Substance: OXYCODONE
     Dosage: 5.0MG AS REQUIRED
     Route: 065
  3. OXYCONTIN [Concomitant]
     Active Substance: OXYCODONE HYDROCHLORIDE
     Dosage: TWO TIMES A DAY
     Route: 065
  4. MOVANTIK [Suspect]
     Active Substance: NALOXEGOL OXALATE
     Indication: CONSTIPATION
     Route: 048
     Dates: start: 201706
  5. MOVANTIK [Suspect]
     Active Substance: NALOXEGOL OXALATE
     Indication: CONSTIPATION
     Dosage: EVERY 3 DAYS 25 MG
     Route: 048
     Dates: start: 201706

REACTIONS (10)
  - Faeces discoloured [Unknown]
  - Off label use [Unknown]
  - Pelvic discomfort [Unknown]
  - Intentional product misuse [Unknown]
  - Feeling abnormal [Unknown]
  - Faecal volume decreased [Unknown]
  - Memory impairment [Unknown]
  - Fibromyalgia [Unknown]
  - Loss of personal independence in daily activities [Unknown]
  - Abdominal pain upper [Unknown]

NARRATIVE: CASE EVENT DATE: 201706
